FAERS Safety Report 21717458 (Version 1)
Quarter: 2022Q4

REPORT INFORMATION
  Report Type: Report from Study
  Country: FR (occurrence: FR)
  Receive Date: 20221212
  Receipt Date: 20221212
  Transmission Date: 20230112
  Serious: Yes (Death, Other)
  Sender: FDA-Public Use
  Company Number: FR-JNJFOC-20221155489

PATIENT
  Age: 60 Year
  Sex: Female

DRUGS (3)
  1. DEXAMETHASONE [Suspect]
     Active Substance: DEXAMETHASONE
     Indication: Plasma cell myeloma
     Dosage: 40 MG/DOSE 1 DOSE/WEEK 3 WEEK(S)/CYCLE
     Route: 065
     Dates: end: 20200114
  2. VELCADE [Suspect]
     Active Substance: BORTEZOMIB
     Indication: Plasma cell myeloma
     Dosage: BORTEZOMIB 1.3 MG/M2/DOSE 1 DOSE(S)/WEEK 3 WEEK(S)/CYCLE
     Route: 065
     Dates: end: 20200114
  3. CYCLOPHOSPHAMIDE [Suspect]
     Active Substance: CYCLOPHOSPHAMIDE
     Indication: Plasma cell myeloma
     Dosage: 40 MG/DOSE 4 DOSE(S)/WEEK 1 WEEK(S)/CYCLE
     Route: 065
     Dates: end: 20200114

REACTIONS (3)
  - Cerebrovascular accident [Fatal]
  - Hypertension [Unknown]
  - Intentional product use issue [Unknown]
